FAERS Safety Report 5933022-X (Version None)
Quarter: 2008Q4

REPORT INFORMATION
  Report Type: 
  Country: None (occurrence: None)
  Receive Date: 20081028
  Receipt Date: 20081021
  Transmission Date: 20090506
  Serious: Yes (Hospitalization, Other)
  Sender: FDA-Public Use
  Company Number: US-ABBOTT-08P-163-0482903-00

PATIENT
  Sex: Female
  Weight: 108.51 kg

DRUGS (15)
  1. HUMIRA [Suspect]
     Indication: PSORIATIC ARTHROPATHY
     Route: 048
     Dates: start: 20060101
  2. HUMIRA [Suspect]
     Indication: ANKYLOSING SPONDYLITIS
  3. LEVOTHYROXINE SODIUM [Concomitant]
     Indication: GOITRE
  4. OMEPRAZOLE [Concomitant]
     Indication: DRUG USE FOR UNKNOWN INDICATION
  5. METFORMIN HCL [Concomitant]
     Indication: DIABETES MELLITUS
  6. ROSIGLITAZONE [Concomitant]
     Indication: DIABETES MELLITUS
  7. CELECOXIB [Concomitant]
     Indication: DRUG USE FOR UNKNOWN INDICATION
  8. ENOXAPARIN SODIUM [Concomitant]
     Indication: DRUG USE FOR UNKNOWN INDICATION
  9. METHOTREXATE [Concomitant]
     Indication: DRUG USE FOR UNKNOWN INDICATION
  10. INEGY [Concomitant]
     Indication: DRUG USE FOR UNKNOWN INDICATION
  11. INSULIN GLARGINE [Concomitant]
     Indication: DIABETES MELLITUS
  12. INSULIN GLULISINE [Concomitant]
     Indication: DIABETES MELLITUS
  13. OLOPATADINE HYDROCHLORIDE [Concomitant]
     Indication: HYPERSENSITIVITY
     Dosage: EYE DROPS
  14. FOLIC ACID [Concomitant]
     Indication: DRUG USE FOR UNKNOWN INDICATION
  15. ALENDRONATE SODIUM [Concomitant]
     Indication: DRUG USE FOR UNKNOWN INDICATION

REACTIONS (1)
  - ARTHRALGIA [None]
